FAERS Safety Report 21396847 (Version 1)
Quarter: 2022Q3

REPORT INFORMATION
  Report Type: Spontaneous
  Country: BR (occurrence: BR)
  Receive Date: 20220930
  Receipt Date: 20220930
  Transmission Date: 20221027
  Serious: Yes (Other)
  Sender: FDA-Public Use
  Company Number: BR-MLMSERVICE-20220829-3763904-1

PATIENT
  Age: 26 Year
  Sex: Male

DRUGS (1)
  1. DOXYCYCLINE [Suspect]
     Active Substance: DOXYCYCLINE
     Indication: Granulomatous rosacea
     Dosage: UNK

REACTIONS (3)
  - Gastric disorder [Unknown]
  - Drug intolerance [Unknown]
  - Off label use [Unknown]
